FAERS Safety Report 14601129 (Version 1)
Quarter: 2018Q1

REPORT INFORMATION
  Report Type: Spontaneous
  Country: GB (occurrence: GB)
  Receive Date: 20180305
  Receipt Date: 20180305
  Transmission Date: 20180509
  Serious: Yes (Hospitalization)
  Sender: FDA-Public Use
  Company Number: GB-ELI_LILLY_AND_COMPANY-GB201802011052

PATIENT
  Sex: Male

DRUGS (10)
  1. MULTIVITAMIN                       /02358601/ [Concomitant]
     Dosage: UNK
  2. ACIDEX                             /00661201/ [Concomitant]
     Dosage: UNK
  3. FORCEVAL                           /08120001/ [Concomitant]
     Active Substance: MINERALS\VITAMINS
     Dosage: UNK
  4. DOCUSATE [Concomitant]
     Active Substance: DOCUSATE
     Dosage: UNK
  5. PARACETAMOL [Concomitant]
     Active Substance: ACETAMINOPHEN
     Dosage: UNK
  6. THIAMINE. [Concomitant]
     Active Substance: THIAMINE
     Dosage: UNK
  7. KETOCONAZOLE. [Concomitant]
     Active Substance: KETOCONAZOLE
     Dosage: UNK
  8. OLANZAPINE. [Suspect]
     Active Substance: OLANZAPINE
     Indication: PRODUCT USED FOR UNKNOWN INDICATION
     Dosage: 5 MG, DAILY
     Route: 048
     Dates: end: 20171108
  9. FLUOXETINE [Concomitant]
     Active Substance: FLUOXETINE HYDROCHLORIDE
     Dosage: UNK
  10. HYDROMOL                           /00906601/ [Concomitant]
     Dosage: UNK

REACTIONS (1)
  - Liver function test abnormal [Recovered/Resolved]
